FAERS Safety Report 16955936 (Version 1)
Quarter: 2019Q4

REPORT INFORMATION
  Report Type: Spontaneous
  Country: US (occurrence: US)
  Receive Date: 20191023
  Receipt Date: 20191023
  Transmission Date: 20200122
  Serious: Yes (Hospitalization)
  Sender: FDA-Public Use
  Company Number: None

PATIENT
  Age: 66 Year
  Sex: Female
  Weight: 96.3 kg

DRUGS (11)
  1. LEVOTHYROXINE. [Concomitant]
     Active Substance: LEVOTHYROXINE
  2. LANSOPRAZOLE 30 MG [Concomitant]
     Active Substance: LANSOPRAZOLE
  3. XARELTO [Concomitant]
     Active Substance: RIVAROXABAN
  4. FLUOXETINE [Concomitant]
     Active Substance: FLUOXETINE HYDROCHLORIDE
  5. ALLOPURINOL. [Concomitant]
     Active Substance: ALLOPURINOL
  6. MELOXICAM 15 MG [Concomitant]
     Active Substance: MELOXICAM
  7. OTEZLA [Suspect]
     Active Substance: APREMILAST
     Indication: PSORIASIS
     Dosage: ?          QUANTITY:27 TABLET(S);?
     Route: 048
     Dates: start: 20190918, end: 20190921
  8. ZYPREXA [Concomitant]
     Active Substance: OLANZAPINE
  9. METOPROLOL ER [Concomitant]
     Active Substance: METOPROLOL SUCCINATE
  10. FUROSEMIDE 20 MG [Concomitant]
     Active Substance: FUROSEMIDE
  11. VITAMIN D 50,000 [Concomitant]

REACTIONS (3)
  - Psychotic disorder [None]
  - Depression [None]
  - Bipolar disorder [None]

NARRATIVE: CASE EVENT DATE: 20191021
